FAERS Safety Report 23887969 (Version 1)
Quarter: 2024Q2

REPORT INFORMATION
  Report Type: Spontaneous
  Country: US (occurrence: US)
  Receive Date: 20240523
  Receipt Date: 20240523
  Transmission Date: 20240716
  Serious: Yes (Hospitalization, Other)
  Sender: FDA-Public Use
  Company Number: US-ARGENX-2024-ARGX-US003378

PATIENT
  Age: 84 Year
  Sex: Female

DRUGS (1)
  1. VYVGART [Suspect]
     Active Substance: EFGARTIGIMOD ALFA-FCAB
     Indication: Myasthenia gravis
     Dosage: UNK
     Route: 042
     Dates: start: 20230724

REACTIONS (7)
  - Cardiac failure congestive [Unknown]
  - Influenza [Unknown]
  - Hallucination, visual [Unknown]
  - Pain [Unknown]
  - Fatigue [Unknown]
  - Erythema [Unknown]
  - Dysphonia [Unknown]
